FAERS Safety Report 10966969 (Version 3)
Quarter: 2015Q2

REPORT INFORMATION
  Report Type: Report from Study
  Country: JP (occurrence: JP)
  Receive Date: 20150330
  Receipt Date: 20150527
  Transmission Date: 20150821
  Serious: Yes (Death)
  Sender: FDA-Public Use
  Company Number: JP-OTSUKA-JP-2015-11709

PATIENT

DRUGS (4)
  1. KALIMATE [Concomitant]
     Active Substance: CALCIUM POLYSTYRENE SULFONATE
     Indication: HYPERKALAEMIA
     Dosage: 16.2 G, QD
     Route: 048
     Dates: start: 20150224, end: 20150226
  2. TOLVAPTAN [Suspect]
     Active Substance: TOLVAPTAN
     Indication: OEDEMA DUE TO CARDIAC DISEASE
     Dosage: 15 MG, QD
     Route: 048
     Dates: start: 20150226, end: 20150226
  3. WYSTAL [Concomitant]
     Active Substance: CEFOPERAZONE SODIUM\SULBACTAM SODIUM
     Indication: PNEUMONIA
     Dosage: 2 G, QD
     Route: 042
     Dates: start: 20150224, end: 20150224
  4. LASIX M [Concomitant]
     Active Substance: FUROSEMIDE
     Indication: CARDIAC FAILURE
     Dosage: 40 MG, QD
     Route: 042
     Dates: start: 20150224, end: 20150226

REACTIONS (1)
  - Circulatory collapse [Fatal]

NARRATIVE: CASE EVENT DATE: 20150226
